FAERS Safety Report 7703584-0 (Version None)
Quarter: 2011Q3

REPORT INFORMATION
  Report Type: 
  Country: None (occurrence: None)
  Receive Date: 20110823
  Receipt Date: 20110812
  Transmission Date: 20111222
  Serious: No
  Sender: FDA-Public Use
  Company Number: PHEH2011US01559

PATIENT
  Sex: Female

DRUGS (3)
  1. SIMAVASTATIN [Concomitant]
     Dosage: 20 MG, UNK
  2. TASIGNA [Suspect]
     Dosage: 200 MG, 4 TIMES A DAY
     Route: 048
     Dates: start: 20091028
  3. FLUOXETINE HCL [Concomitant]
     Dosage: 20 MG, UNK

REACTIONS (1)
  - ARTHRITIS [None]
